FAERS Safety Report 15127685 (Version 2)
Quarter: 2018Q3

REPORT INFORMATION
  Report Type: Spontaneous
  Country: IT (occurrence: IT)
  Receive Date: 20180710
  Receipt Date: 20180720
  Transmission Date: 20181010
  Serious: Yes (Hospitalization)
  Sender: FDA-Public Use
  Company Number: IT-B.I. PHARMACEUTICALS,INC./RIDGEFIELD-2018-12-002343

PATIENT
  Age: 79 Year
  Sex: Male

DRUGS (1)
  1. PRADAXA [Suspect]
     Active Substance: DABIGATRAN ETEXILATE MESYLATE
     Indication: CARDIAC FIBRILLATION
     Dosage: 75 MG
     Route: 048

REACTIONS (2)
  - Rectal haemorrhage [Recovered/Resolved with Sequelae]
  - Diverticulum intestinal [Recovered/Resolved with Sequelae]

NARRATIVE: CASE EVENT DATE: 20180612
